FAERS Safety Report 10694930 (Version 3)
Quarter: 2015Q2

REPORT INFORMATION
  Report Type: Spontaneous
  Country: IT (occurrence: IT)
  Receive Date: 20150107
  Receipt Date: 20150623
  Transmission Date: 20150821
  Serious: Yes (Hospitalization)
  Sender: FDA-Public Use
  Company Number: IT-SA-2015SA001348

PATIENT
  Age: 85 Year
  Sex: Female

DRUGS (5)
  1. LASIX [Suspect]
     Active Substance: FUROSEMIDE
     Dosage: DOSE: 2 DOSAGE UNIT DAILY DOSE:2 UNIT(S)
     Route: 048
     Dates: start: 20140601, end: 20150103
  2. LEXOTAN [Concomitant]
     Active Substance: BROMAZEPAM
     Dosage: 2.5 MG/ML
  3. COUMADIN [Concomitant]
     Active Substance: WARFARIN SODIUM
     Dosage: 5 MG TABLET, 30 TABLETS
  4. DILATREND [Concomitant]
     Active Substance: CARVEDILOL
     Dosage: 6.25 MG TABLET, 28 TABLETS
  5. TRIATEC [Suspect]
     Active Substance: RAMIPRIL
     Dosage: DIVISIBLE TABLET DOSE:1 UNIT(S)
     Route: 048
     Dates: start: 20130601, end: 20150103

REACTIONS (2)
  - Syncope [Recovering/Resolving]
  - Orthostatic hypotension [Recovering/Resolving]

NARRATIVE: CASE EVENT DATE: 20150103
